FAERS Safety Report 4680782-4 (Version None)
Quarter: 2005Q2

REPORT INFORMATION
  Report Type: 
  Country: None (occurrence: None)
  Receive Date: 20050601
  Receipt Date: 20050601
  Transmission Date: 20051028
  Serious: Yes (Other)
  Sender: FDA-Public Use
  Company Number: None

PATIENT
  Age: 54 Year
  Sex: Female

DRUGS (1)
  1. MORPHINE [Suspect]
     Dosage: 1 MG X 2
     Dates: start: 20050503, end: 20050503

REACTIONS (1)
  - DEVICE FAILURE [None]
